FAERS Safety Report 22323068 (Version 1)
Quarter: 2023Q2

REPORT INFORMATION
  Report Type: Spontaneous
  Country: US (occurrence: None)
  Receive Date: 20230512
  Receipt Date: 20230512
  Transmission Date: 20230722
  Serious: Yes (Hospitalization, Disabling, Other)
  Sender: FDA-Public Use
  Company Number: None

PATIENT
  Age: 40 Year
  Sex: Male
  Weight: 98.1 kg

DRUGS (1)
  1. ACETAMINOPHEN\BUTALBITAL\CAFFEINE [Suspect]
     Active Substance: ACETAMINOPHEN\BUTALBITAL\CAFFEINE
     Indication: Headache
     Dosage: FREQUENCY : AS NEEDED;?
     Route: 048

REACTIONS (3)
  - Drug hypersensitivity [None]
  - Hypophagia [None]
  - SJS-TEN overlap [None]

NARRATIVE: CASE EVENT DATE: 20230503
